FAERS Safety Report 21946500 (Version 1)
Quarter: 2023Q1

REPORT INFORMATION
  Report Type: Spontaneous
  Country: US (occurrence: US)
  Receive Date: 20230202
  Receipt Date: 20230202
  Transmission Date: 20230417
  Serious: Yes (Other)
  Sender: FDA-Public Use
  Company Number: US-INSUD PHARMA-2301US00461

PATIENT

DRUGS (2)
  1. NUVESSA [Suspect]
     Active Substance: METRONIDAZOLE
     Indication: Colitis
     Dosage: UNK
     Route: 065
  2. HYDRALAZINE [Concomitant]
     Active Substance: HYDRALAZINE HYDROCHLORIDE
     Indication: Colitis

REACTIONS (8)
  - Pemphigoid [Unknown]
  - Cutaneous vasculitis [Unknown]
  - Urticarial vasculitis [Unknown]
  - Petechiae [Unknown]
  - Eosinophilia [Unknown]
  - Rash maculo-papular [Unknown]
  - Skin abrasion [Unknown]
  - Pruritus [Unknown]
